FAERS Safety Report 5860104-3 (Version None)
Quarter: 2008Q3

REPORT INFORMATION
  Report Type: 
  Country: None (occurrence: None)
  Receive Date: 20080827
  Receipt Date: 20080822
  Transmission Date: 20090109
  Serious: Yes (Life-Threatening, Hospitalization)
  Sender: FDA-Public Use
  Company Number: FR-WYE-G01573208

PATIENT
  Sex: Female
  Weight: 64 kg

DRUGS (3)
  1. TORISEL [Suspect]
     Indication: RENAL CANCER METASTATIC
     Route: 042
     Dates: start: 20080523, end: 20080523
  2. ISOTRETINOIN [Concomitant]
     Dosage: UNKNOWN
  3. POLARAMINE [Concomitant]
     Indication: PREMEDICATION
     Dosage: 1 AMPULE OF 5 MG, 30 MINUTES BEFORE TORISEL INFUSION
     Route: 042
     Dates: start: 20080523, end: 20080523

REACTIONS (4)
  - ANAPHYLACTIC SHOCK [None]
  - BACK PAIN [None]
  - CHEST DISCOMFORT [None]
  - CHEST PAIN [None]
